FAERS Safety Report 10075839 (Version 2)
Quarter: 2014Q2

REPORT INFORMATION
  Report Type: Spontaneous
  Country: JP (occurrence: JP)
  Receive Date: 20140414
  Receipt Date: 20140521
  Transmission Date: 20141212
  Serious: Yes (Hospitalization, Other)
  Sender: FDA-Public Use
  Company Number: JP-ELI_LILLY_AND_COMPANY-JP201404001878

PATIENT
  Age: 72 Year
  Sex: Female
  Weight: 54 kg

DRUGS (20)
  1. ZYPREXA [Suspect]
     Indication: BIPOLAR II DISORDER
     Dosage: 10 MG, UNK
     Route: 048
     Dates: start: 200910
  2. ZYPREXA [Interacting]
     Dosage: 5 MG, UNK
     Route: 048
     Dates: start: 20100511
  3. ZYPREXA [Interacting]
     Dosage: 7.5 MG, UNK
     Route: 048
     Dates: start: 20130603
  4. ZYPREXA [Interacting]
     Dosage: 10 MG, UNK
     Route: 048
     Dates: start: 20130610
  5. ZYPREXA [Interacting]
     Dosage: 7.5 MG, UNK
     Route: 048
     Dates: start: 20130805
  6. ZYPREXA [Interacting]
     Dosage: 6.125 MG, UNK
     Route: 048
     Dates: start: 20130812
  7. ZYPREXA [Interacting]
     Dosage: 5 MG, UNK
     Route: 048
     Dates: start: 20131015
  8. ZYPREXA [Interacting]
     Dosage: 2.5 MG, UNK
     Route: 048
     Dates: start: 20140411
  9. CYMBALTA [Interacting]
     Indication: BIPOLAR II DISORDER
     Dosage: 20 MG, UNK
     Route: 048
     Dates: start: 20120207, end: 20130902
  10. LIMAS [Concomitant]
     Indication: BIPOLAR II DISORDER
     Dosage: 100 MG, TID
     Route: 048
     Dates: start: 20100309
  11. LIMAS [Concomitant]
     Dosage: 500 MG, UNK
     Route: 048
     Dates: start: 20100801
  12. LIMAS [Concomitant]
     Dosage: 600 MG, UNK
     Route: 048
  13. LIMAS [Concomitant]
     Dosage: 800 MG, UNK
     Route: 048
     Dates: start: 20130822
  14. PAROXETINE [Concomitant]
     Indication: BIPOLAR II DISORDER
     Dosage: 10 MG, UNK
     Route: 065
  15. PAROXETINE [Concomitant]
     Dosage: 20 MG, UNK
     Dates: start: 20130903
  16. PAROXETINE [Concomitant]
     Dosage: 30 MG, UNK
     Route: 065
     Dates: start: 20131015
  17. MYSLEE [Concomitant]
     Indication: INSOMNIA
     Dosage: 5 MG, UNK
     Route: 048
     Dates: start: 20130122
  18. LIPITOR [Concomitant]
     Indication: HYPERLIPIDAEMIA
     Dosage: 5 MG, UNK
     Route: 048
  19. OPALMON [Concomitant]
     Indication: LUMBAR SPINAL STENOSIS
     Dosage: 5 UG, TID
     Route: 048
     Dates: start: 20110210, end: 20140312
  20. CELECOX [Concomitant]
     Indication: LUMBAR SPINAL STENOSIS
     Dosage: 100 MG, BID
     Route: 048
     Dates: start: 20120809, end: 20140312

REACTIONS (6)
  - Suicidal ideation [Recovered/Resolved]
  - Akathisia [Recovered/Resolved]
  - Drug interaction [Recovered/Resolved]
  - Depression [Recovering/Resolving]
  - Abulia [Unknown]
  - Decreased appetite [Recovering/Resolving]
